FAERS Safety Report 16483285 (Version 1)
Quarter: 2019Q2

REPORT INFORMATION
  Report Type: Spontaneous
  Country: US (occurrence: US)
  Receive Date: 20190627
  Receipt Date: 20190627
  Transmission Date: 20190711
  Serious: No
  Sender: FDA-Public Use
  Company Number: US-MYLANLABS-2019M1057892

PATIENT
  Sex: Female

DRUGS (1)
  1. TIOTIXENE [Suspect]
     Active Substance: THIOTHIXENE
     Indication: PRODUCT USED FOR UNKNOWN INDICATION
     Dosage: UNK

REACTIONS (3)
  - Withdrawal syndrome [Unknown]
  - Adverse event [Unknown]
  - Upper limb fracture [Unknown]
